FAERS Safety Report 8283482-7 (Version None)
Quarter: 2012Q2

REPORT INFORMATION
  Report Type: 
  Country: None (occurrence: None)
  Receive Date: 20120413
  Receipt Date: 20120410
  Transmission Date: 20120825
  Serious: Yes (Death)
  Sender: FDA-Public Use
  Company Number: US-JNJFOC-20120405869

PATIENT
  Sex: Female

DRUGS (56)
  1. DOXORUBICIN HCL [Suspect]
     Dosage: CYCLE 5
     Route: 042
  2. DOXORUBICIN HCL [Suspect]
     Dosage: CYCLE 1
     Route: 042
  3. BLEOMYCIN SULFATE [Suspect]
     Dosage: CYCLE 8
     Route: 042
  4. ETOPOSIDE [Suspect]
     Dosage: CYCLE 1
     Route: 042
  5. CYCLOPHOSPHAMIDE [Suspect]
     Dosage: CYCLE 8
     Route: 042
  6. VINCRISTINE [Suspect]
     Dosage: CYCLE 6
     Route: 042
  7. VINCRISTINE [Suspect]
     Dosage: CYCLE 8
     Route: 042
  8. DOXORUBICIN HCL [Suspect]
     Dosage: CYCLE 3
     Route: 042
  9. ETOPOSIDE [Suspect]
     Dosage: CYCLE 2
     Route: 042
  10. VINBLASTINE SULFATE [Suspect]
     Dosage: CYCLE 4
     Route: 042
  11. VINBLASTINE SULFATE [Suspect]
     Dosage: CYCLE 3
     Route: 042
  12. BLEOMYCIN SULFATE [Suspect]
     Dosage: CYCLE 6
     Route: 042
  13. ETOPOSIDE [Suspect]
     Dosage: CYCLE 3
     Route: 042
  14. VINCRISTINE [Suspect]
     Dosage: CYCLE 1
     Route: 042
  15. PREDNISONE TAB [Suspect]
     Indication: HODGKIN'S DISEASE
     Dosage: CYCLE 1
     Route: 048
  16. PREDNISONE TAB [Suspect]
     Dosage: CYCLE 5
     Route: 048
  17. PROCARBAZINE HYDROCHLORIDE [Suspect]
     Dosage: CYCLE 6
     Route: 065
  18. PROCARBAZINE HYDROCHLORIDE [Suspect]
     Dosage: CYCLE 5
     Route: 065
  19. DOXORUBICIN HCL [Suspect]
     Dosage: CYCLE 4
     Route: 042
  20. ETOPOSIDE [Suspect]
     Indication: HODGKIN'S DISEASE
     Dosage: CYCLE 4
     Route: 042
  21. VINCRISTINE [Suspect]
     Dosage: CYCLE 2
     Route: 042
  22. PREDNISONE TAB [Suspect]
     Dosage: CYCLE 7
     Route: 048
  23. PREDNISONE TAB [Suspect]
     Dosage: CYCLE 4
     Route: 048
  24. DOXORUBICIN HCL [Suspect]
     Indication: HODGKIN'S DISEASE
     Dosage: CYCLE 8
     Route: 042
  25. BLEOMYCIN SULFATE [Suspect]
     Indication: HODGKIN'S DISEASE
     Dosage: CYCLE 1
     Route: 042
  26. CYCLOPHOSPHAMIDE [Suspect]
     Dosage: CYCLE 2
     Route: 042
  27. CYCLOPHOSPHAMIDE [Suspect]
     Dosage: CYCLE 6
     Route: 042
  28. PREDNISONE TAB [Suspect]
     Dosage: CYCLE 3
     Route: 048
  29. PREDNISONE TAB [Suspect]
     Dosage: CYCLE 8
     Route: 048
  30. PROCARBAZINE HYDROCHLORIDE [Suspect]
     Dosage: CYCLE 2
     Route: 065
  31. DOXORUBICIN HCL [Suspect]
     Dosage: CYCLE 7
     Route: 042
  32. BLEOMYCIN SULFATE [Suspect]
     Dosage: CYCLE 2
     Route: 042
  33. CYCLOPHOSPHAMIDE [Suspect]
     Dosage: CYCLE 4
     Route: 042
  34. VINCRISTINE [Suspect]
     Indication: HODGKIN'S DISEASE
     Dosage: CYCLE 3
     Route: 042
  35. PREDNISONE TAB [Suspect]
     Dosage: CYCLE 2
     Route: 048
  36. DOXORUBICIN HCL [Suspect]
     Dosage: CYCLE 6
     Route: 042
  37. DOXORUBICIN HCL [Suspect]
     Dosage: CYCLE 2
     Route: 042
  38. BLEOMYCIN SULFATE [Suspect]
     Dosage: CYCLE 5
     Route: 042
  39. CYCLOPHOSPHAMIDE [Suspect]
     Dosage: CYCLE 3
     Route: 042
  40. CYCLOPHOSPHAMIDE [Suspect]
     Dosage: CYCLE 5
     Route: 042
  41. CYCLOPHOSPHAMIDE [Suspect]
     Dosage: CYCLE 7
     Route: 042
  42. PREDNISONE TAB [Suspect]
     Dosage: CYCLE 6
     Route: 048
  43. PROCARBAZINE HYDROCHLORIDE [Suspect]
     Dosage: CYCLE 3
     Route: 065
  44. PROCARBAZINE HYDROCHLORIDE [Suspect]
     Dosage: CYCLE 1
     Route: 065
  45. PROCARBAZINE HYDROCHLORIDE [Suspect]
     Dosage: CYCLE 8
     Route: 065
  46. VINBLASTINE SULFATE [Suspect]
     Indication: HODGKIN'S DISEASE
     Dosage: CYCLE 1
     Route: 042
  47. BLEOMYCIN SULFATE [Suspect]
     Dosage: CYCLE 3
     Route: 042
  48. BLEOMYCIN SULFATE [Suspect]
     Dosage: CYCLE 4
     Route: 042
  49. BLEOMYCIN SULFATE [Suspect]
     Dosage: CYCLE 7
     Route: 042
  50. CYCLOPHOSPHAMIDE [Suspect]
     Indication: HODGKIN'S DISEASE
     Dosage: CYCLE 1
     Route: 042
  51. VINCRISTINE [Suspect]
     Dosage: CYCLE 4
     Route: 042
  52. VINCRISTINE [Suspect]
     Dosage: CYCLE 5
     Route: 042
  53. VINCRISTINE [Suspect]
     Dosage: CYCLE 7
     Route: 042
  54. PROCARBAZINE HYDROCHLORIDE [Suspect]
     Indication: HODGKIN'S DISEASE
     Dosage: CYCLE 4
     Route: 065
  55. PROCARBAZINE HYDROCHLORIDE [Suspect]
     Dosage: CYCLE 7
     Route: 065
  56. VINBLASTINE SULFATE [Suspect]
     Dosage: CYCLE 2
     Route: 042

REACTIONS (1)
  - HODGKIN'S DISEASE RECURRENT [None]
